FAERS Safety Report 5428961-2 (Version None)
Quarter: 2007Q3

REPORT INFORMATION
  Report Type: 
  Country: None (occurrence: None)
  Receive Date: 20070827
  Receipt Date: 20070822
  Transmission Date: 20080115
  Serious: Yes (Life-Threatening)
  Sender: FDA-Public Use
  Company Number: THQ2007A00818

PATIENT
  Age: 39 Year
  Sex: Female

DRUGS (1)
  1. LEUPROLIDE ACETATE [Suspect]
     Indication: ENDOMETRIOSIS
     Dosage: 3.75 MG (3.75 MG, 1 IN 1 M)  INJECTION
     Dates: start: 20030101

REACTIONS (1)
  - LEUKOCYTOCLASTIC VASCULITIS [None]
